FAERS Safety Report 9763872 (Version 1)
Quarter: 2013Q4

REPORT INFORMATION
  Report Type: Spontaneous
  Country: US (occurrence: US)
  Receive Date: 20131216
  Receipt Date: 20131216
  Transmission Date: 20140711
  Serious: No
  Sender: FDA-Public Use
  Company Number: US-BIOGENIDEC-2013BI115733

PATIENT
  Sex: Female

DRUGS (16)
  1. TECFIDERA [Suspect]
     Indication: MULTIPLE SCLEROSIS
     Route: 048
     Dates: start: 20130806
  2. CELEBREX [Concomitant]
  3. MINIPRESS [Concomitant]
  4. NITROSTAT [Concomitant]
  5. NEURONTIN [Concomitant]
  6. ISOSORBIDE DINITRATE [Concomitant]
  7. BACLOFEN [Concomitant]
  8. TRAZODONE [Concomitant]
  9. ZOFRAN [Concomitant]
  10. VERAPAMIL [Concomitant]
  11. WARFARIN SODIUM [Concomitant]
  12. CELEXA [Concomitant]
  13. PREVACID [Concomitant]
  14. MORPHINE SULFATE [Concomitant]
  15. ENDOCET [Concomitant]
  16. ALTACE [Concomitant]

REACTIONS (2)
  - Urticaria [Unknown]
  - Flushing [Unknown]
